FAERS Safety Report 11457903 (Version 2)
Quarter: 2019Q1

REPORT INFORMATION
  Report Type: Spontaneous
  Country: FR (occurrence: FR)
  Receive Date: 20150904
  Receipt Date: 20190223
  Transmission Date: 20190417
  Serious: Yes (Other)
  Sender: FDA-Public Use
  Company Number: PHHY2015FR104758

PATIENT
  Age: 39 Year
  Sex: Female
  Weight: 72 kg

DRUGS (1)
  1. IBUPROFEN SANDOZ [Suspect]
     Active Substance: IBUPROFEN
     Indication: HEADACHE
     Dosage: 800 MG, QD
     Route: 048
     Dates: start: 20150723

REACTIONS (3)
  - Paralysis [Unknown]
  - Dysphonia [Unknown]
  - Face oedema [Unknown]

NARRATIVE: CASE EVENT DATE: 20150723
